FAERS Safety Report 4903165-8 (Version None)
Quarter: 2006Q1

REPORT INFORMATION
  Report Type: 
  Country: None (occurrence: None)
  Receive Date: 20060207
  Receipt Date: 20050930
  Transmission Date: 20060701
  Serious: Yes (Hospitalization, Other)
  Sender: FDA-Public Use
  Company Number: PR-MERCK-0510USA01693

PATIENT
  Age: 62 Year
  Sex: Female
  Weight: 66 kg

DRUGS (3)
  1. VIOXX [Suspect]
     Indication: OSTEOARTHRITIS
     Route: 048
     Dates: start: 20030101, end: 20040501
  2. VIOXX [Suspect]
     Indication: BURSITIS
     Route: 048
     Dates: start: 20030101, end: 20040501
  3. MOTRIN [Concomitant]
     Route: 065

REACTIONS (2)
  - EMOTIONAL DISORDER [None]
  - MYOCARDIAL INFARCTION [None]
